FAERS Safety Report 15139845 (Version 2)
Quarter: 2018Q3

REPORT INFORMATION
  Report Type: Spontaneous
  Country: US (occurrence: US)
  Receive Date: 20180713
  Receipt Date: 20180920
  Transmission Date: 20181010
  Serious: No
  Sender: FDA-Public Use
  Company Number: US-SA-2018SA183040

PATIENT
  Age: 22 Year
  Sex: Female

DRUGS (3)
  1. DUPIXENT [Suspect]
     Active Substance: DUPILUMAB
     Dosage: 300 MG, QOW
     Route: 058
     Dates: start: 2018
  2. DUPIXENT [Suspect]
     Active Substance: DUPILUMAB
     Indication: DERMATITIS ATOPIC
     Dosage: 600 MG, 1X
     Route: 058
     Dates: start: 20180627, end: 20180627
  3. MULTIVITAMINS [VITAMINS NOS] [Concomitant]

REACTIONS (7)
  - Injection site pain [Not Recovered/Not Resolved]
  - Perioral dermatitis [Unknown]
  - Injection site discolouration [Not Recovered/Not Resolved]
  - Erythema [Unknown]
  - Injection site coldness [Not Recovered/Not Resolved]
  - Product use issue [Unknown]
  - Dermatitis atopic [Unknown]

NARRATIVE: CASE EVENT DATE: 20180627
